FAERS Safety Report 8156509-0 (Version None)
Quarter: 2012Q1

REPORT INFORMATION
  Report Type: 
  Country: None (occurrence: None)
  Receive Date: 20120222
  Receipt Date: 20120214
  Transmission Date: 20120608
  Serious: Yes (Hospitalization)
  Sender: FDA-Public Use
  Company Number: US-GILEAD-2012-0051027

PATIENT
  Sex: Female

DRUGS (2)
  1. LETAIRIS [Suspect]
     Indication: PRODUCT USED FOR UNKNOWN INDICATION
     Dosage: 5 MG, UNK
     Route: 048
     Dates: start: 20110801
  2. PREDNISONE TAB [Concomitant]

REACTIONS (5)
  - RESPIRATORY DISTRESS [None]
  - SYSTEMIC LUPUS ERYTHEMATOSUS [None]
  - PNEUMONITIS [None]
  - VASCULITIS [None]
  - ANTIPHOSPHOLIPID SYNDROME [None]
